FAERS Safety Report 9010116 (Version 4)
Quarter: 2014Q2

REPORT INFORMATION
  Report Type: Spontaneous
  Country: US (occurrence: US)
  Receive Date: 20130110
  Receipt Date: 20140611
  Transmission Date: 20141212
  Serious: Yes (Hospitalization, Other)
  Sender: FDA-Public Use
  Company Number: US-MERCK-1301USA002298

PATIENT
  Sex: Female
  Weight: 90.25 kg

DRUGS (4)
  1. FOSAMAX [Suspect]
     Indication: OSTEOPENIA
     Dosage: 70 MG, UNK
     Route: 048
     Dates: start: 20060404, end: 201107
  2. ALENDRONATE SODIUM [Suspect]
     Dosage: 70 MG, QW
     Route: 048
     Dates: start: 20081009, end: 20100904
  3. CALCIUM (UNSPECIFIED) (+) VITAMIN D (UNSPECIFIED) [Concomitant]
     Indication: OSTEOPENIA
     Dosage: 1000 IU, BID
     Dates: start: 200103, end: 2010
  4. LITHIUM CARBONATE [Concomitant]
     Indication: BIPOLAR DISORDER
     Dosage: UNK
     Dates: start: 1987

REACTIONS (22)
  - Open reduction of fracture [Unknown]
  - Renal failure chronic [Not Recovered/Not Resolved]
  - Cholecystectomy [Unknown]
  - Troponin increased [Unknown]
  - Anaemia postoperative [Unknown]
  - Toxicity to various agents [Recovering/Resolving]
  - Mental status changes [Recovering/Resolving]
  - Renal failure acute [Recovering/Resolving]
  - Bradycardia [Recovering/Resolving]
  - Femur fracture [Recovered/Resolved]
  - Vitamin D deficiency [Unknown]
  - Osteoporosis [Unknown]
  - Bladder spasm [Unknown]
  - Hypothyroidism [Unknown]
  - Aortic stenosis [Unknown]
  - Tonsillectomy [Unknown]
  - Cardiac murmur [Unknown]
  - Coronary artery disease [Not Recovered/Not Resolved]
  - Bursitis [Unknown]
  - Aortic valve incompetence [Unknown]
  - Mitral valve incompetence [Unknown]
  - Aortic valve sclerosis [Unknown]
